FAERS Safety Report 23048852 (Version 1)
Quarter: 2023Q4

REPORT INFORMATION
  Report Type: Spontaneous
  Country: US (occurrence: None)
  Receive Date: 20231008
  Receipt Date: 20231008
  Transmission Date: 20240109
  Serious: Yes (Disabling)
  Sender: FDA-Public Use
  Company Number: None

PATIENT
  Age: 79 Year
  Sex: Female
  Weight: 53.1 kg

DRUGS (6)
  1. PAXLOVID [Suspect]
     Active Substance: NIRMATRELVIR\RITONAVIR
     Indication: COVID-19
     Dates: start: 20230918, end: 20230922
  2. SYNTHROID [Concomitant]
     Active Substance: LEVOTHYROXINE SODIUM
  3. ELIQUIS [Concomitant]
     Active Substance: APIXABAN
  4. Vitamin A [Concomitant]
  5. CALCIUM [Concomitant]
     Active Substance: CALCIUM
  6. LUTEIN [Concomitant]
     Active Substance: LUTEIN

REACTIONS (1)
  - COVID-19 [None]

NARRATIVE: CASE EVENT DATE: 20230925
